FAERS Safety Report 18731526 (Version 1)
Quarter: 2021Q1

REPORT INFORMATION
  Report Type: Spontaneous
  Country: EG (occurrence: EG)
  Receive Date: 20210112
  Receipt Date: 20210112
  Transmission Date: 20210419
  Serious: Yes (Other)
  Sender: FDA-Public Use
  Company Number: EG-INNOCOLL PHARMACEUTICALS LIMITED-2020INN00002

PATIENT
  Sex: Female

DRUGS (2)
  1. BUPIVACAINE. [Suspect]
     Active Substance: BUPIVACAINE
     Indication: LABOUR PAIN
     Dosage: 10 ML BUPIVACAINE 0.25% IN NORMAL SALINE AS A LOADING DOSE (5 ML INCREMENTS EVERY 5 MINUTES) FOLLOWE
     Route: 008
  2. LIDOCAINE. [Suspect]
     Active Substance: LIDOCAINE
     Indication: LABOUR PAIN
     Dosage: GIVEN AS A TEST DOSE
     Route: 008

REACTIONS (1)
  - Motor dysfunction [Unknown]
